FAERS Safety Report 9106064 (Version 2)
Quarter: 2013Q2

REPORT INFORMATION
  Report Type: Spontaneous
  Country: US (occurrence: US)
  Receive Date: 20130220
  Receipt Date: 20130408
  Transmission Date: 20140414
  Serious: Yes (Other)
  Sender: FDA-Public Use
  Company Number: US-PFIZER INC-2013061263

PATIENT
  Age: 73 Year
  Sex: Female
  Weight: 40.81 kg

DRUGS (3)
  1. PREMARIN [Suspect]
     Indication: HORMONE THERAPY
     Dosage: 0.9 MG, 6X/WEEK
     Route: 048
  2. CELEBREX [Suspect]
     Indication: RHEUMATOID ARTHRITIS
     Dosage: 200 MG, 1X/DAY
     Route: 048
  3. SYNTHROID [Concomitant]
     Indication: GOITRE
     Dosage: 150 UG, 1X/DAY

REACTIONS (6)
  - Pancreatic carcinoma [Unknown]
  - Jaundice cholestatic [Unknown]
  - Lung neoplasm malignant [Unknown]
  - Pneumonia [Unknown]
  - Staphylococcal infection [Unknown]
  - Weight decreased [Unknown]
